FAERS Safety Report 21815316 (Version 1)
Quarter: 2023Q1

REPORT INFORMATION
  Report Type: Report from Study
  Country: US (occurrence: US)
  Receive Date: 20230104
  Receipt Date: 20230104
  Transmission Date: 20230417
  Serious: No
  Sender: FDA-Public Use
  Company Number: US-ABBVIE-4215578

PATIENT
  Sex: Female

DRUGS (1)
  1. SKYRIZI [Suspect]
     Active Substance: RISANKIZUMAB-RZAA
     Indication: Guttate psoriasis
     Dosage: SKYRIZI 150 MG/ML SUBCUTANEOUSLY ONCE (WEEK 0, WEEK 4, EVERY 12 WEEKS THEREAFTER.) THERAPY START ...
     Route: 058

REACTIONS (3)
  - Off label use [Unknown]
  - Fatigue [Unknown]
  - Herpes simplex [Unknown]

NARRATIVE: CASE EVENT DATE: 20220101
